FAERS Safety Report 9291740 (Version 2)
Quarter: 2013Q2

REPORT INFORMATION
  Report Type: Spontaneous
  Country: US (occurrence: US)
  Receive Date: 20130516
  Receipt Date: 20130619
  Transmission Date: 20140414
  Serious: Yes (Hospitalization, Other)
  Sender: FDA-Public Use
  Company Number: US-009507513-1305USA007097

PATIENT
  Sex: Female

DRUGS (1)
  1. NUVARING [Suspect]
     Indication: CONTRACEPTION
     Dosage: 0.120 MG/DAY OF ETONOGESTREL AND 0.015 MG/DAY OF ETHINYL ESTRADIOL
     Route: 067

REACTIONS (2)
  - Surgery [Unknown]
  - Pulmonary embolism [Unknown]
